FAERS Safety Report 8958508 (Version 1)
Quarter: 2012Q4

REPORT INFORMATION
  Report Type: Spontaneous
  Country: US (occurrence: None)
  Receive Date: 20121205
  Receipt Date: 20121205
  Transmission Date: 20130627
  Serious: Yes (Hospitalization)
  Sender: FDA-Public Use
  Company Number: None

PATIENT
  Age: 58 Year
  Sex: Female
  Weight: 82.1 kg

DRUGS (3)
  1. TAMOXIFEN [Suspect]
  2. CITALOPRAM [Concomitant]
  3. WELLBUTRIN XL [Concomitant]

REACTIONS (2)
  - Pancreatitis [None]
  - Lipids increased [None]
